APPROVED DRUG PRODUCT: ZYTIGA
Active Ingredient: ABIRATERONE ACETATE
Strength: 250MG
Dosage Form/Route: TABLET;ORAL
Application: N202379 | Product #001 | TE Code: AB
Applicant: JANSSEN BIOTECH INC
Approved: Apr 28, 2011 | RLD: Yes | RS: No | Type: RX